FAERS Safety Report 19636660 (Version 4)
Quarter: 2021Q4

REPORT INFORMATION
  Report Type: Report from Study
  Country: US (occurrence: US)
  Receive Date: 20210729
  Receipt Date: 20211106
  Transmission Date: 20220303
  Serious: Yes (Hospitalization, Other)
  Sender: FDA-Public Use
  Company Number: US-TEVA-2021-US-1936452

PATIENT
  Age: 18 Year
  Sex: Male
  Weight: 84.2 kg

DRUGS (7)
  1. METHOTREXATE [Suspect]
     Active Substance: METHOTREXATE
     Indication: Acute lymphocytic leukaemia
     Dosage: QHS QWK
     Route: 048
     Dates: start: 20200824
  2. METHOTREXATE [Suspect]
     Active Substance: METHOTREXATE
     Dosage: QHS QWK
     Route: 048
     Dates: end: 20210614
  3. VINCRISTINE [Suspect]
     Active Substance: VINCRISTINE
     Indication: Acute lymphocytic leukaemia
     Dosage: Q29D
     Route: 042
     Dates: start: 20191028, end: 20210602
  4. PREDNISONE [Suspect]
     Active Substance: PREDNISONE
     Indication: Acute lymphocytic leukaemia
     Dosage: 80 MILLIGRAM DAILY;
     Route: 048
     Dates: start: 20200727, end: 20210607
  5. METHOTREXATE [Suspect]
     Active Substance: METHOTREXATE
     Indication: Acute lymphocytic leukaemia
     Route: 037
     Dates: start: 20191014, end: 20210404
  6. MERCAPTOPURINE [Suspect]
     Active Substance: MERCAPTOPURINE
     Indication: Acute lymphocytic leukaemia
     Dosage: QHS?(MONDAY-FRIDAY)/25 MG QHS (SATURDAY-SUNDAY)
     Route: 048
     Dates: start: 20191015, end: 20210620
  7. RUXOLITINIB [Suspect]
     Active Substance: RUXOLITINIB
     Indication: Acute lymphocytic leukaemia
     Dosage: 200 MILLIGRAM DAILY; 14D ON/14D OFF
     Route: 048
     Dates: start: 20191015, end: 20210616

REACTIONS (5)
  - Rhinovirus infection [Recovered/Resolved]
  - Anaemia [Recovered/Resolved]
  - Enterovirus infection [Recovered/Resolved]
  - Pyrexia [Recovered/Resolved]
  - Osteonecrosis [Unknown]

NARRATIVE: CASE EVENT DATE: 20210621
